FAERS Safety Report 9447906 (Version 2)
Quarter: 2013Q3

REPORT INFORMATION
  Report Type: Spontaneous
  Country: US (occurrence: US)
  Receive Date: 20130808
  Receipt Date: 20130823
  Transmission Date: 20140515
  Serious: Yes (Hospitalization)
  Sender: FDA-Public Use
  Company Number: PHEH2013US015626

PATIENT
  Age: 40 Year
  Sex: Female
  Weight: 99.77 kg

DRUGS (7)
  1. ACTHAR [Concomitant]
     Indication: MULTIPLE SCLEROSIS RELAPSE
     Dosage: 80 IU FOR 5 DAYS
     Dates: start: 20130530, end: 20130605
  2. LYRICA [Concomitant]
     Indication: PAIN
     Dosage: 150 MG, UNK
     Route: 048
     Dates: start: 2008
  3. NUVIGIL [Concomitant]
     Indication: FATIGUE
     Dosage: 100 MG, QD
     Route: 048
     Dates: start: 2010
  4. BACLOFEN [Concomitant]
     Dosage: 20 MG, UNK
     Route: 048
     Dates: start: 2007
  5. PAMELOR [Concomitant]
     Indication: PAIN
     Dosage: 30 MG, QD
     Route: 048
     Dates: start: 2012
  6. PAXIL//PAROXETINE HYDROCHLORIDE [Concomitant]
     Indication: DEPRESSION
     Dosage: 20 MG, UNK
     Route: 048
     Dates: start: 20130710
  7. GILENYA [Suspect]
     Indication: MULTIPLE SCLEROSIS
     Dosage: 0.5 MG, QD
     Route: 048
     Dates: start: 201106, end: 20130725

REACTIONS (3)
  - Multiple sclerosis relapse [Unknown]
  - Hemiparesis [Recovering/Resolving]
  - Central nervous system lesion [Recovering/Resolving]
